FAERS Safety Report 24853176 (Version 1)
Quarter: 2025Q1

REPORT INFORMATION
  Report Type: Report from Study
  Country: US (occurrence: US)
  Receive Date: 20250117
  Receipt Date: 20250117
  Transmission Date: 20250409
  Serious: Yes (Other)
  Sender: ABBVIE
  Company Number: US-ABBVIE-5699849

PATIENT
  Age: 56 Year
  Sex: Female

DRUGS (2)
  1. HUMIRA [Suspect]
     Active Substance: ADALIMUMAB
     Indication: Rheumatoid arthritis
     Route: 058
     Dates: start: 20240227, end: 20240227
  2. HUMIRA [Suspect]
     Active Substance: ADALIMUMAB
     Route: 058
     Dates: start: 20230315

REACTIONS (9)
  - Ligament disorder [Unknown]
  - Somnolence [Unknown]
  - Ankle fracture [Recovered/Resolved]
  - Rheumatoid arthritis [Recovered/Resolved]
  - Rib fracture [Not Recovered/Not Resolved]
  - Musculoskeletal disorder [Unknown]
  - Accident [Unknown]
  - Limb injury [Recovered/Resolved]
  - Joint injury [Recovered/Resolved]

NARRATIVE: CASE EVENT DATE: 20240101
